FAERS Safety Report 21387549 (Version 1)
Quarter: 2022Q3

REPORT INFORMATION
  Report Type: Spontaneous
  Country: CN (occurrence: CN)
  Receive Date: 20220928
  Receipt Date: 20220928
  Transmission Date: 20221027
  Serious: Yes (Other)
  Sender: FDA-Public Use
  Company Number: CN-PFIZER INC-PV202200070029

PATIENT
  Age: 59 Year
  Sex: Female
  Weight: 53 kg

DRUGS (6)
  1. CYTARABINE [Suspect]
     Active Substance: CYTARABINE
     Indication: Acute myeloid leukaemia
     Dosage: 0.5 G, 1X/DAY(D1)
     Route: 037
     Dates: start: 20220720, end: 20220720
  2. CYTARABINE [Suspect]
     Active Substance: CYTARABINE
     Dosage: 1.5 G, 2X/DAY (D1-D3)
     Route: 041
     Dates: start: 20220720, end: 20220722
  3. METHOTREXATE SODIUM [Suspect]
     Active Substance: METHOTREXATE SODIUM
     Indication: Acute myeloid leukaemia
     Dosage: 5 ML, 1X/DAY(D1)
     Route: 037
     Dates: start: 20220720, end: 20220720
  4. SODIUM CHLORIDE [Concomitant]
     Active Substance: SODIUM CHLORIDE
     Indication: Vehicle solution use
     Dosage: 100 ML, 1X/DAY (D1)
     Dates: start: 20220720, end: 20220720
  5. SODIUM CHLORIDE [Concomitant]
     Active Substance: SODIUM CHLORIDE
     Dosage: 10 ML, 1X/DAY(D1)
     Route: 037
     Dates: start: 20220720, end: 20220720
  6. SODIUM CHLORIDE [Concomitant]
     Active Substance: SODIUM CHLORIDE
     Indication: Vehicle solution use
     Dosage: 250 ML, 2X/DAY(D1-D3)
     Route: 041
     Dates: start: 20220720, end: 20220722

REACTIONS (2)
  - Cytopenia [Recovering/Resolving]
  - Off label use [Unknown]

NARRATIVE: CASE EVENT DATE: 20220720
